FAERS Safety Report 23673185 (Version 4)
Quarter: 2024Q2

REPORT INFORMATION
  Report Type: Spontaneous
  Country: US (occurrence: US)
  Receive Date: 20240326
  Receipt Date: 20240619
  Transmission Date: 20240716
  Serious: Yes (Other)
  Sender: FDA-Public Use
  Company Number: US-PFIZER INC-202400070450

PATIENT
  Age: 73 Year
  Sex: Female
  Weight: 64.853 kg

DRUGS (3)
  1. PREMARIN [Suspect]
     Active Substance: ESTROGENS, CONJUGATED
     Indication: Multiple sclerosis
     Dosage: 1.25 MG, 1X/DAY
     Route: 048
     Dates: start: 2001
  2. LEVOTHYROXINE SODIUM [Concomitant]
     Active Substance: LEVOTHYROXINE SODIUM
     Indication: Thyroid disorder
     Dosage: 1.25 UG, 1X/DAY
  3. INTERFERON [Concomitant]
     Active Substance: INTERFERON
     Dosage: ONE SHOT A MONTH

REACTIONS (11)
  - Multiple sclerosis [Unknown]
  - Hypothyroidism [Unknown]
  - Gastrointestinal disorder [Not Recovered/Not Resolved]
  - Loss of personal independence in daily activities [Unknown]
  - Menopause [Unknown]
  - Alopecia [Unknown]
  - Hot flush [Unknown]
  - Skin wrinkling [Unknown]
  - Malaise [Unknown]
  - Off label use [Unknown]
  - Product storage error [Unknown]

NARRATIVE: CASE EVENT DATE: 20010101
